FAERS Safety Report 7667047-3 (Version None)
Quarter: 2011Q3

REPORT INFORMATION
  Report Type: 
  Country: None (occurrence: None)
  Receive Date: 20110806
  Receipt Date: 20110606
  Transmission Date: 20111222
  Serious: No
  Sender: FDA-Public Use
  Company Number: US-ABBOTT-11P-163-0730347-00

PATIENT
  Sex: Female
  Weight: 88.076 kg

DRUGS (2)
  1. ZOMIG [Concomitant]
     Indication: PRODUCT USED FOR UNKNOWN INDICATION
  2. NIASPAN [Suspect]
     Indication: PRODUCT USED FOR UNKNOWN INDICATION
     Dosage: 500MG DOSE IN AM AND 500MG DOSE AT BEDTIME
     Dates: start: 20110525

REACTIONS (2)
  - DEHYDRATION [None]
  - MIGRAINE [None]
